FAERS Safety Report 16696494 (Version 5)
Quarter: 2021Q1

REPORT INFORMATION
  Report Type: Report from Study
  Country: CA (occurrence: CA)
  Receive Date: 20190813
  Receipt Date: 20210331
  Transmission Date: 20210419
  Serious: Yes (Hospitalization, Other)
  Sender: FDA-Public Use
  Company Number: CA-REGENERON PHARMACEUTICALS, INC.-2019-47474

PATIENT

DRUGS (2)
  1. EYLEA [Suspect]
     Active Substance: AFLIBERCEPT
     Dosage: 1 DF, ONCE, LAST INJECTION PRIOR TO EVENT
     Dates: start: 20190204, end: 20190204
  2. EYLEA [Suspect]
     Active Substance: AFLIBERCEPT
     Indication: RETINAL VEIN OCCLUSION
     Dosage: UNK
     Dates: start: 20170403

REACTIONS (4)
  - Eye laser surgery [Unknown]
  - Eye haemorrhage [Unknown]
  - Corneal abrasion [Unknown]
  - Hypertension [Unknown]

NARRATIVE: CASE EVENT DATE: 2019
